FAERS Safety Report 8882938 (Version 1)
Quarter: 2012Q4

REPORT INFORMATION
  Report Type: 
  Country: US (occurrence: US)
  Receive Date: 20121102
  Receipt Date: 20121102
  Transmission Date: 20130627
  Serious: No
  Sender: FDA-Public Use
  Company Number: US-ASTRAZENECA-2011SE72165

PATIENT
  Age: 70 Year
  Sex: Male
  Weight: 77.1 kg

DRUGS (7)
  1. CRESTOR [Suspect]
     Indication: BLOOD CHOLESTEROL INCREASED
     Route: 048
  2. PLAVIX [Concomitant]
     Indication: ISCHAEMIC HEART DISEASE PROPHYLAXIS
  3. GABAPENTIN [Concomitant]
     Indication: NEUROPATHY PERIPHERAL
  4. MULTIVITAMIN [Concomitant]
     Indication: MEDICAL DIET
  5. FISH OIL [Concomitant]
     Indication: MEDICAL DIET
  6. GLUCOSAMINE [Concomitant]
     Indication: MEDICAL DIET
  7. ASPIRIN [Concomitant]
     Indication: ISCHAEMIC HEART DISEASE PROPHYLAXIS

REACTIONS (2)
  - Hypoaesthesia [Unknown]
  - Myalgia [Unknown]
